FAERS Safety Report 4944641-1 (Version None)
Quarter: 2006Q1

REPORT INFORMATION
  Report Type: 
  Country: None (occurrence: None)
  Receive Date: 20060113
  Receipt Date: 20041230
  Transmission Date: 20060701
  Serious: Yes (Other)
  Sender: FDA-Public Use
  Company Number: HQWYE204016JUL04

PATIENT
  Age: 55 Year
  Sex: Female
  Weight: 54.48 kg

DRUGS (2)
  1. PREMPRO [Suspect]
     Indication: HOT FLUSH
     Dosage: ORAL
     Route: 048
     Dates: start: 19980301
  2. PREMPRO [Suspect]
     Indication: HYPERHIDROSIS
     Dosage: ORAL
     Route: 048
     Dates: start: 19980301

REACTIONS (1)
  - OVARIAN CANCER [None]
